FAERS Safety Report 7261580-4 (Version None)
Quarter: 2011Q1

REPORT INFORMATION
  Report Type: 
  Country: None (occurrence: None)
  Receive Date: 20110130
  Receipt Date: 20101102
  Transmission Date: 20110831
  Serious: No
  Sender: FDA-Public Use
  Company Number: US-ABBOTT-10P-163-0682809-00

PATIENT
  Sex: Female
  Weight: 56.296 kg

DRUGS (7)
  1. HUMIRA [Suspect]
     Route: 058
  2. FLORENTINE [Concomitant]
     Indication: PRODUCT USED FOR UNKNOWN INDICATION
  3. FOLIC ACID [Concomitant]
     Indication: PRODUCT USED FOR UNKNOWN INDICATION
  4. PREDNISONE [Concomitant]
     Indication: PAIN
     Dosage: INSTRUCTED TO DISCONTINUE BY MD.
     Dates: start: 20101001
  5. METHOTREXATE [Concomitant]
     Indication: RHEUMATOID ARTHRITIS
  6. HUMIRA [Suspect]
     Indication: RHEUMATOID ARTHRITIS
     Dosage: SKIPPED INJECTIONS APPROXIMATELY 3 TO 4 WEEKS AGO.
     Route: 058
  7. DICLOFENAC [Concomitant]
     Indication: PRODUCT USED FOR UNKNOWN INDICATION

REACTIONS (3)
  - DRUG INEFFECTIVE [None]
  - DRUG DOSE OMISSION [None]
  - PAIN [None]
